FAERS Safety Report 18611322 (Version 1)
Quarter: 2020Q4

REPORT INFORMATION
  Report Type: Spontaneous
  Country: US (occurrence: US)
  Receive Date: 20201214
  Receipt Date: 20201214
  Transmission Date: 20210114
  Serious: Yes (Hospitalization, Other)
  Sender: FDA-Public Use
  Company Number: US-BAYER-2020-270775

PATIENT
  Age: 15 Year
  Sex: Female

DRUGS (1)
  1. PARACETAMOL [Suspect]
     Active Substance: ACETAMINOPHEN
     Indication: SUICIDE ATTEMPT
     Dosage: 18 MG, ONCE

REACTIONS (5)
  - Metabolic acidosis [None]
  - Intentional overdose [None]
  - Suicide attempt [None]
  - Unresponsive to stimuli [None]
  - Drug level above therapeutic [None]
